FAERS Safety Report 5843837-4 (Version None)
Quarter: 2008Q3

REPORT INFORMATION
  Report Type: 
  Country: None (occurrence: None)
  Receive Date: 20080813
  Receipt Date: 20080805
  Transmission Date: 20090109
  Serious: Yes (Other)
  Sender: FDA-Public Use
  Company Number: PHHY2008JP17631

PATIENT
  Age: 1 Year
  Sex: Male

DRUGS (4)
  1. ZADITEN [Suspect]
     Indication: RHINITIS ALLERGIC
     Route: 048
  2. ALIMEZINE [Suspect]
     Dosage: UNK
     Route: 048
  3. MUCODYNE [Suspect]
     Dosage: UNK
     Route: 048
  4. CLARITHROMYCIN [Suspect]
     Dosage: UNK
     Route: 048

REACTIONS (1)
  - HAEMATURIA [None]
